FAERS Safety Report 5716520-3 (Version None)
Quarter: 2008Q2

REPORT INFORMATION
  Report Type: 
  Country: None (occurrence: None)
  Receive Date: 20080416
  Receipt Date: 20080409
  Transmission Date: 20081010
  Serious: Yes (Hospitalization, Other)
  Sender: FDA-Public Use
  Company Number: 200812762

PATIENT
  Age: 36 Year
  Sex: Female

DRUGS (2)
  1. RHOPHYLAC [Suspect]
     Indication: PROPHYLAXIS AGAINST RH ISOIMMUNISATION
     Dosage: 300 UG DAILY
     Dates: start: 20071121
  2. RHOPHYLAC [Suspect]
     Indication: PROPHYLAXIS AGAINST RH ISOIMMUNISATION
     Dosage: 300 UG DAILY
     Dates: start: 20071126

REACTIONS (8)
  - ARTHRALGIA [None]
  - CAESAREAN SECTION [None]
  - INFLUENZA LIKE ILLNESS [None]
  - INTRA-UTERINE DEATH [None]
  - MATERNAL DRUGS AFFECTING FOETUS [None]
  - PNEUMONIA [None]
  - RESPIRATORY DISORDER [None]
  - SEPSIS [None]
